FAERS Safety Report 12983815 (Version 1)
Quarter: 2016Q4

REPORT INFORMATION
  Report Type: Spontaneous
  Country: US (occurrence: US)
  Receive Date: 20161129
  Receipt Date: 20161129
  Transmission Date: 20170207
  Serious: Yes (Death)
  Sender: FDA-Public Use
  Company Number: US-COLLEGIUM PHARMACEUTICAL, INC.-2016CGM00042

PATIENT
  Age: 41 Year
  Sex: Female
  Weight: 72.7 kg

DRUGS (4)
  1. CITALOPRAM [Concomitant]
     Active Substance: CITALOPRAM HYDROBROMIDE
     Route: 065
  2. OXYCODONE [Suspect]
     Active Substance: OXYCODONE
     Route: 048
  3. TAPENTADOL [Suspect]
     Active Substance: TAPENTADOL
     Route: 048
  4. BENZODIAZEPINES [Suspect]
     Active Substance: BENZODIAZEPINE
     Route: 048

REACTIONS (5)
  - Toxicity to various agents [Fatal]
  - Completed suicide [Fatal]
  - Intentional overdose [Fatal]
  - Potentiating drug interaction [Fatal]
  - Pneumonia aspiration [Fatal]
